FAERS Safety Report 7734384-3 (Version None)
Quarter: 2011Q3

REPORT INFORMATION
  Report Type: 
  Country: None (occurrence: None)
  Receive Date: 20110817
  Receipt Date: 20101230
  Transmission Date: 20111222
  Serious: Yes (Other)
  Sender: FDA-Public Use
  Company Number: 20108389

PATIENT
  Age: 30 Year
  Sex: Female

DRUGS (3)
  1. BUPIVACAINE HCL [Concomitant]
  2. FENTANYL [Concomitant]
  3. LIORESAL [Suspect]
     Indication: MUSCLE SPASTICITY
     Dosage: 88MCG, DAILY, INTRATHECAL
     Route: 037

REACTIONS (3)
  - DISCOMFORT [None]
  - PAIN [None]
  - WITHDRAWAL SYNDROME [None]
